FAERS Safety Report 7725678-6 (Version None)
Quarter: 2011Q3

REPORT INFORMATION
  Report Type: 
  Country: None (occurrence: None)
  Receive Date: 20110902
  Receipt Date: 20110824
  Transmission Date: 20111222
  Serious: Yes (Other)
  Sender: FDA-Public Use
  Company Number: PHEH2011US02478

PATIENT
  Sex: Male

DRUGS (1)
  1. TOBI [Suspect]

REACTIONS (2)
  - PSEUDOMONAS INFECTION [None]
  - DRUG INEFFECTIVE [None]
